FAERS Safety Report 5224253-5 (Version None)
Quarter: 2007Q1

REPORT INFORMATION
  Report Type: 
  Country: None (occurrence: None)
  Receive Date: 20070126
  Receipt Date: 20070122
  Transmission Date: 20070707
  Serious: Yes (Hospitalization)
  Sender: FDA-Public Use
  Company Number: L07-MYS-00343-01

PATIENT
  Age: 32 Year
  Sex: Female

DRUGS (3)
  1. PROPRANOLOL [Suspect]
     Indication: HYPERTHYROIDISM
  2. CAMELLIA SINENSIS [Suspect]
  3. CARBIMAZOLE [Concomitant]

REACTIONS (2)
  - HEPATITIS ACUTE [None]
  - HEPATOTOXICITY [None]
